FAERS Safety Report 25475966 (Version 1)
Quarter: 2025Q2

REPORT INFORMATION
  Report Type: Spontaneous
  Country: ES (occurrence: ES)
  Receive Date: 20250625
  Receipt Date: 20250625
  Transmission Date: 20250717
  Serious: Yes (Hospitalization, Other)
  Sender: CELLTRION
  Company Number: None

PATIENT

DRUGS (1)
  1. ADALIMUMAB [Suspect]
     Active Substance: ADALIMUMAB
     Indication: Crohn^s disease
     Dosage: 40 MG, EVERY 14 DAYS
     Route: 058
     Dates: start: 202212

REACTIONS (3)
  - Acute respiratory failure [Recovered/Resolved]
  - COVID-19 [Recovered/Resolved]
  - Proteus infection [Recovered/Resolved]

NARRATIVE: CASE EVENT DATE: 20240611
